FAERS Safety Report 24916667 (Version 1)
Quarter: 2025Q1

REPORT INFORMATION
  Report Type: Spontaneous
  Country: US (occurrence: US)
  Receive Date: 20250203
  Receipt Date: 20250203
  Transmission Date: 20250409
  Serious: Yes (Other)
  Sender: COOPERSURGICAL
  Company Number: US-COOPERSURGICAL, INC.-2025CPS000473

PATIENT
  Age: 35 Year
  Sex: Female
  Weight: 61.224 kg

DRUGS (1)
  1. PARAGARD T 380A [Suspect]
     Active Substance: COPPER
     Indication: Contraception
     Route: 015
     Dates: start: 20090603

REACTIONS (14)
  - Reproductive complication associated with device [Unknown]
  - Infertility female [Unknown]
  - Fallopian tube obstruction [Unknown]
  - Device breakage [Recovered/Resolved]
  - Foreign body in reproductive tract [Recovered/Resolved]
  - Complication of device removal [Recovered/Resolved]
  - Uterine perforation [Not Recovered/Not Resolved]
  - Emotional distress [Recovered/Resolved]
  - Procedural pain [Recovered/Resolved]
  - Anxiety [Unknown]
  - Emotional disorder [Unknown]
  - Cervix injury [Not Recovered/Not Resolved]
  - Abnormal uterine bleeding [Recovered/Resolved]
  - Muscle spasms [Recovered/Resolved]

NARRATIVE: CASE EVENT DATE: 20130227
